FAERS Safety Report 20205786 (Version 1)
Quarter: 2021Q4

REPORT INFORMATION
  Report Type: Spontaneous
  Country: RU (occurrence: RU)
  Receive Date: 20211220
  Receipt Date: 20211220
  Transmission Date: 20220303
  Serious: Yes (Other)
  Sender: FDA-Public Use
  Company Number: RU-TEVA-2021-RU-1990001

PATIENT
  Sex: Female

DRUGS (1)
  1. AJOVY [Suspect]
     Active Substance: FREMANEZUMAB-VFRM
     Route: 065

REACTIONS (6)
  - Swollen tongue [Unknown]
  - Malaise [Unknown]
  - Hypersensitivity [Unknown]
  - Urticaria [Unknown]
  - Erythema [Unknown]
  - Chills [Unknown]
